FAERS Safety Report 6557165-5 (Version None)
Quarter: 2010Q1

REPORT INFORMATION
  Report Type: 
  Country: None (occurrence: None)
  Receive Date: 20100127
  Receipt Date: 20100127
  Transmission Date: 20100710
  Serious: No
  Sender: FDA-Public Use
  Company Number: None

PATIENT
  Age: 6 Year
  Sex: Male
  Weight: 23.1334 kg

DRUGS (1)
  1. VENTOLIN [Suspect]
     Indication: ASTHMA
     Dosage: 2 PUFFS ONCE INHAL
     Route: 055
     Dates: start: 20100125, end: 20100125

REACTIONS (9)
  - ABNORMAL BEHAVIOUR [None]
  - AGGRESSION [None]
  - AGITATION [None]
  - AMNESIA [None]
  - COMPLEX PARTIAL SEIZURES [None]
  - CONFUSIONAL STATE [None]
  - FEAR [None]
  - HALLUCINATION [None]
  - PRODUCT QUALITY ISSUE [None]
